FAERS Safety Report 8531155-5 (Version None)
Quarter: 2012Q3

REPORT INFORMATION
  Report Type: 
  Country: None (occurrence: None)
  Receive Date: 20120723
  Receipt Date: 20120711
  Transmission Date: 20120928
  Serious: Yes (Other)
  Sender: FDA-Public Use
  Company Number: JP-VERTEX PHARMACEUTICALS INC.-AE-2012-010406

PATIENT
  Age: 54 Year
  Sex: Male

DRUGS (9)
  1. REBETOL [Concomitant]
     Indication: HEPATITIS C
     Route: 048
     Dates: start: 20120529, end: 20120618
  2. PEG-INTRON [Concomitant]
     Route: 058
     Dates: start: 20120704
  3. GLYCYRON [Concomitant]
     Route: 048
  4. TELAVIC (TELAPREVIR) [Suspect]
     Indication: HEPATITIS C
     Route: 048
     Dates: start: 20120529
  5. PEG-INTRON [Concomitant]
     Indication: HEPATITIS C
     Route: 058
     Dates: start: 20120529, end: 20120618
  6. PEG-INTRON [Concomitant]
     Route: 058
     Dates: start: 20120619, end: 20120703
  7. URSO 250 [Concomitant]
     Route: 048
  8. VITAMENDIN [Concomitant]
     Route: 048
  9. REBETOL [Concomitant]
     Route: 048
     Dates: start: 20120619

REACTIONS (1)
  - NEUTROPHIL COUNT DECREASED [None]
